FAERS Safety Report 9671014 (Version 2)
Quarter: 2014Q1

REPORT INFORMATION
  Report Type: Spontaneous
  Country: US (occurrence: US)
  Receive Date: 20131106
  Receipt Date: 20140115
  Transmission Date: 20141002
  Serious: No
  Sender: FDA-Public Use
  Company Number: US-009507513-1311USA001806

PATIENT
  Age: 24 Year
  Sex: Female
  Weight: 79.82 kg

DRUGS (2)
  1. NEXPLANON [Suspect]
     Indication: CONTRACEPTION
     Dosage: 1ROD, UNK
     Route: 059
     Dates: start: 20120615
  2. TYLENOL [Concomitant]
     Indication: DYSMENORRHOEA
     Dosage: UNKNOWN

REACTIONS (3)
  - Menorrhagia [Unknown]
  - Thrombosis [Unknown]
  - Dysmenorrhoea [Unknown]
